FAERS Safety Report 15668320 (Version 1)
Quarter: 2018Q4

REPORT INFORMATION
  Report Type: Spontaneous
  Country: FR (occurrence: FR)
  Receive Date: 20181129
  Receipt Date: 20181129
  Transmission Date: 20190205
  Serious: Yes (Hospitalization)
  Sender: FDA-Public Use
  Company Number: FR-TEVA-2018-FR-979517

PATIENT
  Age: 61 Year
  Sex: Female
  Weight: 111 kg

DRUGS (3)
  1. SPIFEN [Suspect]
     Active Substance: IBUPROFEN
     Indication: EAR PAIN
     Route: 048
     Dates: start: 20180908, end: 20180914
  2. AMOXICILLINE [Suspect]
     Active Substance: AMOXICILLIN
     Indication: EAR PAIN
     Route: 048
     Dates: start: 20180908, end: 20180914
  3. CONEBILOX [Concomitant]
     Active Substance: HYDROCHLOROTHIAZIDE\NEBIVOLOL HYDROCHLORIDE
     Indication: HYPERTENSION
     Route: 048
     Dates: start: 20180220

REACTIONS (1)
  - Erythema nodosum [Recovering/Resolving]

NARRATIVE: CASE EVENT DATE: 20180913
